FAERS Safety Report 16549175 (Version 3)
Quarter: 2019Q3

REPORT INFORMATION
  Report Type: Spontaneous
  Country: JP (occurrence: JP)
  Receive Date: 20190709
  Receipt Date: 20190809
  Transmission Date: 20191004
  Serious: Yes (Other)
  Sender: FDA-Public Use
  Company Number: JP-BEH-2019104255

PATIENT
  Sex: Male
  Weight: 140 kg

DRUGS (2)
  1. ALBUMINAR-5 [Suspect]
     Active Substance: ALBUMIN HUMAN
     Indication: FLUID REPLACEMENT
  2. ALBUMINAR-5 [Suspect]
     Active Substance: ALBUMIN HUMAN
     Indication: HAEMORRHAGE
     Route: 042

REACTIONS (1)
  - Anaphylactic shock [Recovered/Resolved]

NARRATIVE: CASE EVENT DATE: 20190705
